FAERS Safety Report 4868134-5 (Version None)
Quarter: 2005Q4

REPORT INFORMATION
  Report Type: 
  Country: None (occurrence: None)
  Receive Date: 20051229
  Receipt Date: 20051220
  Transmission Date: 20060501
  Serious: Yes (Disabling)
  Sender: FDA-Public Use
  Company Number: PHBS2005IT18865

PATIENT
  Age: 69 Year
  Sex: Female

DRUGS (4)
  1. ZOMETA [Suspect]
     Indication: METASTASES TO BONE
     Dosage: 4 MG, QMO
     Dates: start: 20030101, end: 20051130
  2. AREDIA [Suspect]
     Indication: METASTASES TO BONE
     Dosage: 90 MG, QMO
     Dates: start: 20000101, end: 20030101
  3. ARIMIDEX [Concomitant]
     Dates: start: 20030101
  4. NOLVADEX [Concomitant]
     Dates: start: 20000101, end: 20030101

REACTIONS (4)
  - JAW DISORDER [None]
  - OSTEOMYELITIS [None]
  - TOOTH EXTRACTION [None]
  - WOUND DEBRIDEMENT [None]
